FAERS Safety Report 4762675-7 (Version None)
Quarter: 2005Q3

REPORT INFORMATION
  Report Type: 
  Country: None (occurrence: None)
  Receive Date: 20050902
  Receipt Date: 20050520
  Transmission Date: 20060218
  Serious: Yes (Other)
  Sender: FDA-Public Use
  Company Number: 2005S1002776

PATIENT
  Age: 63 Year
  Sex: Female

DRUGS (14)
  1. FENTANYL [Suspect]
     Indication: MULTIPLE SCLEROSIS
     Dosage: 75 MCG/HR;Q3D;TDER
     Dates: start: 20050417, end: 20050425
  2. ESOMEPRAZOLE [Concomitant]
  3. DEXTROPROPOXYPHENE [Concomitant]
  4. ZOLPIDEM TARTRATE [Concomitant]
  5. OXYBUTYNIN CHLORIDE [Concomitant]
  6. CARBAMAZEPINE [Concomitant]
  7. BACLOFEN [Concomitant]
  8. LACTULOSE [Concomitant]
  9. METOCLOPRAMIDE [Concomitant]
  10. ESCITALOPRAM OXALATE [Concomitant]
  11. INTERFERON BETA [Concomitant]
  12. DCN-100 [Concomitant]
  13. LORATADINE [Concomitant]
  14. METOCOPRAMIDE [Concomitant]

REACTIONS (3)
  - DERMATITIS [None]
  - FACE OEDEMA [None]
  - OEDEMA PERIPHERAL [None]
